FAERS Safety Report 9076668 (Version 2)
Quarter: 2013Q1

REPORT INFORMATION
  Report Type: Spontaneous
  Country: IT (occurrence: IT)
  Receive Date: 20130130
  Receipt Date: 20130312
  Transmission Date: 20140127
  Serious: Yes (Hospitalization)
  Sender: FDA-Public Use
  Company Number: IT-009507513-1301ITA013083

PATIENT
  Age: 87 Year
  Sex: Male

DRUGS (4)
  1. LOSAPREX [Suspect]
     Dosage: 0.5 POSOLOGICAL UNIT DAILY
     Route: 048
     Dates: start: 20111115
  2. CARVEDILOL [Concomitant]
     Dosage: UNK
  3. COUMADIN [Concomitant]
     Dosage: UNK
     Route: 048
  4. CARDURA [Concomitant]
     Dosage: UNK
     Route: 048

REACTIONS (1)
  - Hyponatraemia [Not Recovered/Not Resolved]
